FAERS Safety Report 17188841 (Version 1)
Quarter: 2019Q4

REPORT INFORMATION
  Report Type: Other
  Country: US (occurrence: US)
  Receive Date: 20191222
  Receipt Date: 20191222
  Transmission Date: 20200122
  Serious: No
  Sender: FDA-Public Use
  Company Number: US-ACORDA-ACO_162272_2019

PATIENT
  Sex: Male

DRUGS (3)
  1. INBRIJA [Suspect]
     Active Substance: LEVODOPA
     Indication: PARKINSON^S DISEASE
     Dosage: 42 MILLIGRAM, AS NEEDED, 2 CAPSULES UP TO 5 TIMES PER DAY
     Dates: start: 20191113
  2. INBRIJA [Suspect]
     Active Substance: LEVODOPA
     Indication: RESPIRATORY DISORDER
  3. INBRIJA [Suspect]
     Active Substance: LEVODOPA
     Indication: ON AND OFF PHENOMENON

REACTIONS (6)
  - Hallucination [Unknown]
  - Product physical issue [Unknown]
  - Product colour issue [Unknown]
  - Fall [Unknown]
  - Off label use [Unknown]
  - Fatigue [Unknown]
